FAERS Safety Report 6454168-6 (Version None)
Quarter: 2009Q4

REPORT INFORMATION
  Report Type: 
  Country: None (occurrence: None)
  Receive Date: 20091124
  Receipt Date: 20091116
  Transmission Date: 20100525
  Serious: Yes (Congenital Anomaly)
  Sender: FDA-Public Use
  Company Number: GXKR2009GB12517

PATIENT

DRUGS (7)
  1. FLUOXETINE (NGX) [Suspect]
     Dosage: 20 MG (MATERNAL DOSE)
     Route: 064
  2. AMOXICILLIN [Concomitant]
     Dosage: 250 MG (MATERNAL DOSE)
     Route: 064
     Dates: start: 20081117, end: 20081124
  3. BECOTIDE [Concomitant]
     Dosage: 200 UG, BID (MATERNAL DOSE)
     Route: 064
     Dates: start: 20061222
  4. AMOXICILLIN AND CLAVULANATE POTASSIUM [Concomitant]
     Dosage: 325 MG (MATERNAL DOSE)
     Route: 064
     Dates: start: 20081201, end: 20081208
  5. GAVISCON /OLD FORM/ [Concomitant]
     Dosage: UNK
     Route: 064
     Dates: start: 20090508, end: 20090823
  6. LACTULOSE [Concomitant]
     Dosage: 13 ML, BID  (MATERNAL DOSE)
     Route: 064
     Dates: start: 20090803, end: 20090823
  7. ALBUTEROL [Concomitant]
     Dosage: 2 DF, QID  (MATERNAL DOSE)
     Route: 064
     Dates: start: 20061113

REACTIONS (3)
  - DRUG EXPOSURE DURING PREGNANCY [None]
  - HYPOSPADIAS [None]
  - SURGERY [None]
